FAERS Safety Report 13522001 (Version 5)
Quarter: 2018Q4

REPORT INFORMATION
  Report Type: Spontaneous
  Country: US (occurrence: US)
  Receive Date: 20170508
  Receipt Date: 20181030
  Transmission Date: 20190204
  Serious: Yes (Death, Other)
  Sender: FDA-Public Use
  Company Number: US-ASTELLAS-2017US012694

PATIENT
  Age: 76 Year
  Sex: Male

DRUGS (2)
  1. XTANDI [Suspect]
     Active Substance: ENZALUTAMIDE
     Indication: PROSTATE CANCER
     Route: 048
     Dates: start: 20161224
  2. XTANDI [Suspect]
     Active Substance: ENZALUTAMIDE
     Route: 048
     Dates: end: 201810

REACTIONS (12)
  - Scar [Unknown]
  - Bladder disorder [Unknown]
  - Prostatic specific antigen increased [Not Recovered/Not Resolved]
  - Urethral obstruction [Unknown]
  - Bladder catheterisation [Unknown]
  - Death [Fatal]
  - Furuncle [Not Recovered/Not Resolved]
  - Atrial fibrillation [Unknown]
  - Prostatic disorder [Unknown]
  - Nausea [Not Recovered/Not Resolved]
  - Fatigue [Unknown]
  - Urethral disorder [Unknown]

NARRATIVE: CASE EVENT DATE: 201702
